FAERS Safety Report 8006456-X (Version None)
Quarter: 2011Q4

REPORT INFORMATION
  Report Type: 
  Country: None (occurrence: None)
  Receive Date: 20111226
  Receipt Date: 20111118
  Transmission Date: 20120403
  Serious: Yes (Hospitalization)
  Sender: FDA-Public Use
  Company Number: PHEH2011US009784

PATIENT
  Sex: Female
  Weight: 194 kg

DRUGS (16)
  1. COUMADIN [Concomitant]
  2. COREG [Concomitant]
  3. LASIX [Concomitant]
  4. HYZAAR [Concomitant]
  5. MULTI-VITAMIN [Concomitant]
  6. METROCREAM [Concomitant]
  7. LOVENOX [Concomitant]
  8. CALTRATE PLUS [Concomitant]
  9. LIPITOR [Concomitant]
  10. BYSTOLIC [Concomitant]
  11. IMDUR [Concomitant]
  12. ILARIS [Suspect]
     Indication: CRYOPYRIN ASSOCIATED PERIODIC SYNDROME
     Dosage: 180 MG EVERY 8 WEEKS
     Route: 058
     Dates: start: 20110829
  13. TRICOR [Concomitant]
  14. SYNTHROID [Concomitant]
  15. LAMISIL [Concomitant]
  16. PREDNISONE [Concomitant]

REACTIONS (1)
  - CHEST PAIN [None]
